FAERS Safety Report 5094310-5 (Version None)
Quarter: 2006Q3

REPORT INFORMATION
  Report Type: 
  Country: None (occurrence: None)
  Receive Date: 20060831
  Receipt Date: 20060821
  Transmission Date: 20061208
  Serious: Yes (Hospitalization, Other)
  Sender: FDA-Public Use
  Company Number: 2006AC01544

PATIENT
  Age: 47 Year
  Sex: Male

DRUGS (10)
  1. QUETIAPINE [Suspect]
     Indication: DEPRESSION
     Dosage: 600-700 MG PER DAY
     Route: 048
  2. QUETIAPINE [Suspect]
     Indication: DELUSION
     Dosage: 600-700 MG PER DAY
     Route: 048
  3. QUETIAPINE [Suspect]
     Dosage: TAPERED DOWN FROM 700 MG/DAY TO 300 MG/DAY
     Route: 048
  4. QUETIAPINE [Suspect]
     Dosage: TAPERED DOWN FROM 700 MG/DAY TO 300 MG/DAY
     Route: 048
  5. CLOMIPRAMINE HCL [Suspect]
     Indication: DEPRESSION
     Dosage: DOSE INCREASED TO 300 MG/DAY WITHIN 7 DAYS OF STARTING DRUG
  6. CLOMIPRAMINE HCL [Suspect]
  7. CLOMIPRAMINE HCL [Suspect]
  8. MIRTAZAPINE [Concomitant]
     Indication: DEPRESSION
     Dosage: MAXIMUM DOSE 60 MG/DAY.
  9. MIRTAZAPINE [Concomitant]
     Dosage: MAXIMUM DOSE 60 MG/DAY.
  10. EXTENDED RELEASE VENLAFAXINE [Concomitant]
     Indication: DEPRESSION
     Dosage: MAXIMUM DOSE 300 MG/DAY.

REACTIONS (10)
  - ANTIDEPRESSANT DRUG LEVEL ABOVE THERAPEUTIC [None]
  - ANTIPSYCHOTIC DRUG LEVEL ABOVE THERAPEUTIC [None]
  - BLOOD ALKALINE PHOSPHATASE INCREASED [None]
  - CONSTIPATION [None]
  - DIZZINESS [None]
  - GAMMA-GLUTAMYLTRANSFERASE INCREASED [None]
  - HYPERHIDROSIS [None]
  - HYPOTENSION [None]
  - TACHYCARDIA [None]
  - THERAPY NON-RESPONDER [None]
